FAERS Safety Report 9156640 (Version 3)
Quarter: 2013Q1

REPORT INFORMATION
  Report Type: Spontaneous
  Country: CN (occurrence: None)
  Receive Date: 20130211
  Receipt Date: 20130315
  Transmission Date: 20140127
  Serious: Yes (Life-Threatening, Hospitalization)
  Sender: FDA-Public Use
  Company Number: UTC-028633

PATIENT
  Age: 67 Year
  Sex: Female
  Weight: 72 kg

DRUGS (10)
  1. REMODULIN [Suspect]
     Indication: PULMONARY ARTERIAL HYPERTENSION
     Dosage: 37.44 UG/KG (0.026 UG/KG, 1 IN 1 MIN), SUBCUTANEOUS
     Route: 058
     Dates: start: 20130109, end: 20130122
  2. DIGOXIN [Concomitant]
  3. BOSENTAN [Concomitant]
  4. FUROSEMIDE [Concomitant]
  5. SPIRONOLACTONE [Concomitant]
  6. WARFARINA (WARFARIN) [Concomitant]
  7. VENTAVIS (ILOPROST) [Concomitant]
  8. LANTUS (INSULIN GLARGINE) [Concomitant]
  9. VIAGRA (SILDENAFIL) [Concomitant]
  10. NOVRAPID PENFILL (INSULIN ASPART) [Concomitant]

REACTIONS (5)
  - Septic shock [None]
  - Pneumonia aspiration [None]
  - Vomiting [None]
  - Blood lactic acid increased [None]
  - Renal failure acute [None]
